FAERS Safety Report 5754863-8 (Version None)
Quarter: 2008Q2

REPORT INFORMATION
  Report Type: 
  Country: None (occurrence: None)
  Receive Date: 20080527
  Receipt Date: 20080507
  Transmission Date: 20081010
  Serious: Yes (Death)
  Sender: FDA-Public Use
  Company Number: 2008AL003927

PATIENT
  Age: 81 Year
  Sex: Female

DRUGS (2)
  1. DIGOXIN [Suspect]
     Indication: ATRIAL FIBRILLATION
     Dosage: 0.125MG DAILY PO
     Route: 048
  2. OXYGEN THEARPY [Concomitant]

REACTIONS (2)
  - DEMENTIA [None]
  - DIABETES MELLITUS [None]
